FAERS Safety Report 8105031 (Version 9)
Quarter: 2014Q2

REPORT INFORMATION
  Report Type: Spontaneous
  Country: US (occurrence: US)
  Receive Date: 20110824
  Receipt Date: 20140512
  Transmission Date: 20141212
  Serious: Yes (Hospitalization, Other)
  Sender: FDA-Public Use
  Company Number: US-009507513-1108USA02949

PATIENT
  Sex: Female
  Weight: 60.78 kg

DRUGS (4)
  1. FOSAMAX [Suspect]
     Indication: OSTEOPENIA
     Dosage: 70 MG, UNK
     Route: 048
     Dates: start: 200003, end: 200905
  2. FOSAMAX [Suspect]
     Indication: OSTEOPOROSIS
  3. FOSAMAX [Suspect]
     Indication: OSTEOPENIA
     Dosage: 70 MG, UNK
     Route: 048
     Dates: start: 200906, end: 200908
  4. ALENDRONATE SODIUM [Suspect]
     Dosage: 70 MG, UNK

REACTIONS (26)
  - Femur fracture [Unknown]
  - Sepsis [Unknown]
  - Fall [Unknown]
  - Back pain [Unknown]
  - Back pain [Unknown]
  - Cardiac disorder [Unknown]
  - Osteoarthritis [Unknown]
  - Blood potassium decreased [Unknown]
  - Musculoskeletal disorder [Unknown]
  - Musculoskeletal disorder [Unknown]
  - Asthma [Unknown]
  - Foot fracture [Unknown]
  - Cellulitis [Unknown]
  - Bronchitis [Unknown]
  - Hypertensive heart disease [Unknown]
  - Sputum increased [Unknown]
  - Cough [Unknown]
  - Osteoarthritis [Unknown]
  - Arrhythmia [Unknown]
  - Hypertension [Unknown]
  - Leukocytosis [Unknown]
  - Deformity thorax [Unknown]
  - Pulmonary fibrosis [Unknown]
  - Hot flush [Unknown]
  - Arthralgia [Unknown]
  - Gastrooesophageal reflux disease [Unknown]
